FAERS Safety Report 8599624-X (Version None)
Quarter: 2012Q3

REPORT INFORMATION
  Report Type: 
  Country: None (occurrence: None)
  Receive Date: 20120816
  Receipt Date: 20120809
  Transmission Date: 20120928
  Serious: Yes (Hospitalization)
  Sender: FDA-Public Use
  Company Number: CZ-PFIZER INC-2012195596

PATIENT
  Age: 68 Year
  Sex: Male
  Weight: 92 kg

DRUGS (6)
  1. TESTOSTERONE UNDECANOATE [Concomitant]
     Indication: HYPOGONADISM
     Dosage: UNK
     Dates: start: 19931024
  2. UNDESTOR [Concomitant]
     Indication: HYPOGONADISM
     Dosage: UNK
     Dates: start: 19930603
  3. FLUVASTATIN [Concomitant]
     Indication: HYPERLIPIDAEMIA
     Dosage: UNK
     Dates: start: 19980701
  4. LEVOTHYROXINE [Concomitant]
     Indication: BLOOD THYROID STIMULATING HORMONE DECREASED
     Dosage: UNK
     Dates: start: 19931024
  5. GENOTROPIN [Suspect]
     Indication: HYPOPITUITARISM
     Dosage: 0.27 MG, UNK
     Route: 058
     Dates: start: 20001219, end: 20010612
  6. HYDROCORTISONE [Concomitant]
     Indication: BLOOD CORTICOTROPHIN DECREASED
     Dosage: UNK
     Dates: start: 19930701

REACTIONS (1)
  - EYE DISORDER [None]
